FAERS Safety Report 17401199 (Version 3)
Quarter: 2022Q2

REPORT INFORMATION
  Report Type: Report from Study
  Country: US (occurrence: US)
  Receive Date: 20200211
  Receipt Date: 20220526
  Transmission Date: 20220721
  Serious: Yes (Hospitalization, Congenital Anomaly, Other)
  Sender: FDA-Public Use
  Company Number: US-TAKEDA-2020TUS006788

PATIENT
  Sex: Female
  Weight: 2.589 kg

DRUGS (1)
  1. VEDOLIZUMAB [Suspect]
     Active Substance: VEDOLIZUMAB
     Indication: Product used for unknown indication
     Dosage: 300 MILLIGRAM
     Route: 042
     Dates: start: 20180302, end: 20181124

REACTIONS (4)
  - Ventricular septal defect [Unknown]
  - Patent ductus arteriosus [Unknown]
  - Viral infection [Unknown]
  - Foetal exposure during pregnancy [Unknown]
